FAERS Safety Report 5845004-7 (Version None)
Quarter: 2008Q3

REPORT INFORMATION
  Report Type: 
  Country: None (occurrence: None)
  Receive Date: 20080814
  Receipt Date: 20080807
  Transmission Date: 20090109
  Serious: Yes (Hospitalization)
  Sender: FDA-Public Use
  Company Number: US-ROCHE-570544

PATIENT
  Sex: Female

DRUGS (5)
  1. PEG-INTERFERON A-2A (RO 25-8310) [Suspect]
     Dosage: FORM: PREFILLED SYRINGE THERAPY INTERRUPTED FOR 2 WEEKS.
     Route: 065
     Dates: start: 20080312, end: 20080614
  2. PEG-INTERFERON A-2A (RO 25-8310) [Suspect]
     Dosage: THE PATIENT IS IN WEEK 20 OF TREATMENT.
     Route: 065
  3. RIBAVIRIN [Suspect]
     Dosage: THERAPY INTERRUPTED FOR 2 WEEKS
     Route: 065
     Dates: start: 20080312, end: 20080614
  4. RIBAVIRIN [Suspect]
     Route: 065
     Dates: start: 20080630
  5. RIBAVIRIN [Suspect]
     Dosage: DOSE REDUCED, THE PATIENT IS IN WEEK 20 OF TREATMENT.
     Route: 065

REACTIONS (2)
  - LOSS OF CONSCIOUSNESS [None]
  - WHITE BLOOD CELL COUNT DECREASED [None]
